FAERS Safety Report 14759874 (Version 2)
Quarter: 2018Q2

REPORT INFORMATION
  Report Type: Report from Study
  Country: None (occurrence: US)
  Receive Date: 20180413
  Receipt Date: 20180417
  Transmission Date: 20180711
  Serious: Yes (Hospitalization, Other)
  Sender: FDA-Public Use
  Company Number: US-ABBVIE-18P-163-2318164-00

PATIENT
  Age: 81 Year
  Sex: Male
  Weight: 98.97 kg

DRUGS (22)
  1. VITAMIN B12 [Concomitant]
     Active Substance: CYANOCOBALAMIN
     Indication: VITAMIN SUPPLEMENTATION
  2. VENCLEXTA [Suspect]
     Active Substance: VENETOCLAX
     Indication: CHRONIC LYMPHOCYTIC LEUKAEMIA
     Dosage: 100/40 MG
     Route: 048
     Dates: start: 20180214
  3. ASPIRIN. [Concomitant]
     Active Substance: ASPIRIN
     Indication: ARRHYTHMIA
  4. SYNTHROID [Concomitant]
     Active Substance: LEVOTHYROXINE SODIUM
     Indication: PRODUCT USED FOR UNKNOWN INDICATION
  5. PRAVASTATIN. [Concomitant]
     Active Substance: PRAVASTATIN
     Indication: BLOOD CHOLESTEROL INCREASED
  6. VITAMIN C [Concomitant]
     Active Substance: ASCORBIC ACID
     Indication: VITAMIN SUPPLEMENTATION
  7. VENCLEXTA [Suspect]
     Active Substance: VENETOCLAX
     Dosage: 100/40 MG
     Route: 048
  8. POTASSIUM [Concomitant]
     Active Substance: POTASSIUM
     Indication: VITAMIN SUPPLEMENTATION
  9. ACYCLOVIR. [Concomitant]
     Active Substance: ACYCLOVIR
     Indication: PROPHYLAXIS
  10. VITAMIN D [Concomitant]
     Active Substance: CHOLECALCIFEROL
     Indication: VITAMIN SUPPLEMENTATION
  11. MULTIVITAMIN [Concomitant]
     Active Substance: VITAMINS
     Indication: VITAMIN SUPPLEMENTATION
  12. FLOMAX [Concomitant]
     Active Substance: TAMSULOSIN HYDROCHLORIDE
     Indication: PRODUCT USED FOR UNKNOWN INDICATION
  13. VENCLEXTA [Suspect]
     Active Substance: VENETOCLAX
     Dosage: 100/40 MG
     Route: 048
  14. ALLOPURINOL. [Concomitant]
     Active Substance: ALLOPURINOL
     Indication: PROPHYLAXIS
  15. XANAX [Concomitant]
     Active Substance: ALPRAZOLAM
     Indication: SLEEP DISORDER THERAPY
  16. WARFARIN [Concomitant]
     Active Substance: WARFARIN
     Indication: ARRHYTHMIA
  17. VENCLEXTA [Suspect]
     Active Substance: VENETOCLAX
     Dosage: 100/40 MG
     Route: 048
  18. VENCLEXTA [Suspect]
     Active Substance: VENETOCLAX
     Dosage: 100/40 MG
     Route: 048
  19. XANAX [Concomitant]
     Active Substance: ALPRAZOLAM
     Indication: ANXIETY
  20. FOLIC ACID. [Concomitant]
     Active Substance: FOLIC ACID
     Indication: VITAMIN SUPPLEMENTATION
  21. LASIX [Concomitant]
     Active Substance: FUROSEMIDE
     Indication: PRODUCT USED FOR UNKNOWN INDICATION
  22. ECHINACEA [Concomitant]
     Active Substance: ECHINACEA, UNSPECIFIED
     Indication: VITAMIN SUPPLEMENTATION

REACTIONS (4)
  - Disease progression [Not Recovered/Not Resolved]
  - Fall [Recovered/Resolved]
  - Chemotherapy [Unknown]
  - Blood lactate dehydrogenase increased [Not Recovered/Not Resolved]

NARRATIVE: CASE EVENT DATE: 20180328
